FAERS Safety Report 17035047 (Version 1)
Quarter: 2019Q4

REPORT INFORMATION
  Report Type: Report from Study
  Country: JP (occurrence: JP)
  Receive Date: 20191115
  Receipt Date: 20191115
  Transmission Date: 20200122
  Serious: No
  Sender: FDA-Public Use
  Company Number: JP-BEH-2019109508

PATIENT
  Age: 43 Year
  Sex: Male
  Weight: 65 kg

DRUGS (9)
  1. CELECOX [Concomitant]
     Active Substance: CELECOXIB
     Dosage: UNK
     Route: 048
     Dates: start: 20180605
  2. GASTER [Concomitant]
     Active Substance: FAMOTIDINE
     Indication: PROPHYLAXIS
     Dosage: UNK
     Route: 048
     Dates: start: 20180605, end: 20190620
  3. IDELVION [Suspect]
     Active Substance: COAGULATION FACTOR IX RECOMBINANT HUMAN
     Dosage: 3000 INTERNATIONAL UNIT, EVERY 7 TO 10 DAYS
     Route: 042
     Dates: start: 20180901
  4. IDELVION [Suspect]
     Active Substance: COAGULATION FACTOR IX RECOMBINANT HUMAN
     Dosage: 3000 INTERNATIONAL UNIT, EVERY 7 TO 10 DAYS
     Route: 042
     Dates: start: 20180901
  5. IDELVION [Suspect]
     Active Substance: COAGULATION FACTOR IX RECOMBINANT HUMAN
     Indication: ANTICOAGULANT THERAPY
     Dosage: 3000 INTERNATIONAL UNIT, EVERY 7 TO 10 DAYS
     Route: 042
     Dates: start: 20180806, end: 20180901
  6. MOHRUS [Concomitant]
     Active Substance: KETOPROFEN
     Dosage: UNK
     Route: 065
     Dates: start: 20070924
  7. FAMOTIDINE. [Concomitant]
     Active Substance: FAMOTIDINE
     Indication: PROPHYLAXIS
     Dosage: UNK
     Route: 048
     Dates: start: 20190221
  8. IDELVION [Suspect]
     Active Substance: COAGULATION FACTOR IX RECOMBINANT HUMAN
     Indication: ANTICOAGULANT THERAPY
     Dosage: 3000 INTERNATIONAL UNIT, EVERY 7 TO 10 DAYS
     Route: 042
     Dates: start: 20180806, end: 20180901
  9. METHYCOBAL [Concomitant]
     Active Substance: METHYLCOBALAMIN
     Dosage: UNK
     Route: 048
     Dates: start: 20161003, end: 20190619

REACTIONS (1)
  - Arthralgia [Unknown]

NARRATIVE: CASE EVENT DATE: 20190620
